FAERS Safety Report 23789446 (Version 1)
Quarter: 2024Q2

REPORT INFORMATION
  Report Type: Spontaneous
  Country: US (occurrence: None)
  Receive Date: 20240425
  Receipt Date: 20240425
  Transmission Date: 20240715
  Serious: No
  Sender: FDA-Public Use
  Company Number: None

PATIENT
  Age: 37 Year
  Sex: Female
  Weight: 69.75 kg

DRUGS (3)
  1. DUPIXENT [Suspect]
     Active Substance: DUPILUMAB
     Indication: Dermatitis allergic
     Dosage: EVERY 2 WEEKS SUBCUTANEOUS
     Route: 058
     Dates: start: 20240423
  2. TRIAMCINOLONE ACETONIDE [Concomitant]
     Active Substance: TRIAMCINOLONE ACETONIDE
  3. clobetsol propionate 0.05% oint [Concomitant]

REACTIONS (2)
  - Injection site pain [None]
  - Product preparation error [None]

NARRATIVE: CASE EVENT DATE: 20240425
